FAERS Safety Report 9081275 (Version 1)
Quarter: 2013Q1

REPORT INFORMATION
  Report Type: Report from Study
  Country: US (occurrence: US)
  Receive Date: 20130130
  Receipt Date: 20130130
  Transmission Date: 20140127
  Serious: No
  Sender: FDA-Public Use
  Company Number: US-ABBOTT-12P-163-0966495-00

PATIENT
  Sex: Female

DRUGS (3)
  1. HUMIRA 40 MG/0.8 ML PEN [Suspect]
     Indication: PSORIASIS
     Dosage: LOADING
     Route: 058
     Dates: start: 201207, end: 201207
  2. HUMIRA 40 MG/0.8 ML PEN [Suspect]
     Dosage: DAY 2
     Route: 058
     Dates: start: 201207, end: 201207
  3. HUMIRA 40 MG/0.8 ML PEN [Suspect]
     Route: 058

REACTIONS (4)
  - Feeling cold [Unknown]
  - Hypersensitivity [Unknown]
  - Hypoaesthesia [Unknown]
  - Choking sensation [Unknown]
